FAERS Safety Report 8022571-9 (Version None)
Quarter: 2011Q4

REPORT INFORMATION
  Report Type: 
  Country: None (occurrence: None)
  Receive Date: 20111123
  Receipt Date: 20110824
  Transmission Date: 20120403
  Serious: No
  Sender: FDA-Public Use
  Company Number: 334951

PATIENT
  Sex: Male

DRUGS (1)
  1. VICTOZA [Suspect]
     Indication: PRODUCT USED FOR UNKNOWN INDICATION
     Dosage: 0.6 MG, SINGLE, SUBCUTANEOUS ; 1.2 MG, QD, SUBCUTANEOUS ; 1.8 MG, QD, SUBCUTANEOUS
     Route: 058

REACTIONS (6)
  - WEIGHT DECREASED [None]
  - DYSPEPSIA [None]
  - CONSTIPATION [None]
  - INSOMNIA [None]
  - DECREASED APPETITE [None]
  - MALAISE [None]
